FAERS Safety Report 6436936-X (Version None)
Quarter: 2009Q4

REPORT INFORMATION
  Report Type: 
  Country: None (occurrence: None)
  Receive Date: 20091109
  Receipt Date: 20091028
  Transmission Date: 20100525
  Serious: Yes (Hospitalization)
  Sender: FDA-Public Use
  Company Number: 09FR004715

PATIENT
  Age: 46 Year
  Sex: Male

DRUGS (2)
  1. IBUPROFEN [Suspect]
     Indication: OROPHARYNGEAL DISCOMFORT
     Dosage: 400MG, 3 TABLETS OVER 2 DAYS, ORAL
     Route: 048
     Dates: start: 20080708, end: 20080709
  2. CELLCEPT [Concomitant]

REACTIONS (5)
  - AGRANULOCYTOSIS [None]
  - CHILLS [None]
  - OROPHARYNGEAL DISCOMFORT [None]
  - PAIN [None]
  - PYREXIA [None]
